FAERS Safety Report 23771113 (Version 1)
Quarter: 2024Q2

REPORT INFORMATION
  Report Type: Spontaneous
  Country: GB (occurrence: GB)
  Receive Date: 20240423
  Receipt Date: 20240423
  Transmission Date: 20240716
  Serious: Yes (Hospitalization)
  Sender: FDA-Public Use
  Company Number: GB-NOVOPROD-1205254

PATIENT
  Age: 27 Year
  Sex: Female
  Weight: 82.6 kg

DRUGS (1)
  1. OZEMPIC [Suspect]
     Active Substance: SEMAGLUTIDE
     Indication: Weight control
     Dosage: UNK
     Dates: start: 20240214

REACTIONS (13)
  - Blood urine present [Unknown]
  - Dehydration [Unknown]
  - Hypotension [Unknown]
  - Heart rate increased [Unknown]
  - Vomiting [Unknown]
  - Pain [Unknown]
  - Malaise [Unknown]
  - Nausea [Recovered/Resolved]
  - Decreased appetite [Unknown]
  - Retching [Unknown]
  - Suspected counterfeit product [Unknown]
  - Product use in unapproved indication [Unknown]
  - Prescription drug used without a prescription [Unknown]

NARRATIVE: CASE EVENT DATE: 20240214
